FAERS Safety Report 15647974 (Version 3)
Quarter: 2019Q4

REPORT INFORMATION
  Report Type: Spontaneous
  Country: SE (occurrence: SE)
  Receive Date: 20181122
  Receipt Date: 20191009
  Transmission Date: 20200122
  Serious: Yes (Hospitalization)
  Sender: FDA-Public Use
  Company Number: SE-TEVA-2018-SE-976525

PATIENT
  Age: 47 Year
  Sex: Male

DRUGS (12)
  1. CLAFORAN [Suspect]
     Active Substance: CEFOTAXIME SODIUM
     Indication: INFECTION
     Dates: start: 20100429, end: 20100501
  2. OXYCONTIN [Concomitant]
     Active Substance: OXYCODONE HYDROCHLORIDE
     Indication: PAIN
     Route: 065
  3. METRONIDAZOL ACTAVIS [Suspect]
     Active Substance: METRONIDAZOLE
     Route: 065
     Dates: start: 20100522, end: 20100525
  4. FELODIPINE. [Concomitant]
     Active Substance: FELODIPINE
     Route: 065
  5. METHOTREXATE. [Suspect]
     Active Substance: METHOTREXATE
     Route: 065
     Dates: start: 20100429, end: 20100429
  6. DALACIN [CLINDAMYCIN HYDROCHLORIDE] [Suspect]
     Active Substance: CLINDAMYCIN HYDROCHLORIDE
     Dates: start: 20100429, end: 20100501
  7. DALACIN-C [Suspect]
     Active Substance: CLINDAMYCIN
     Dates: start: 201005
  8. ENALAPRIL [Concomitant]
     Active Substance: ENALAPRIL
     Route: 065
  9. OXYNORM [Concomitant]
     Active Substance: OXYCODONE HYDROCHLORIDE
     Indication: PAIN
     Route: 065
  10. DALACIN [CLINDAMYCIN HYDROCHLORIDE] [Concomitant]
     Active Substance: CLINDAMYCIN HYDROCHLORIDE
     Dates: start: 201005
  11. MERONEM [Suspect]
     Active Substance: MEROPENEM
     Dates: start: 201005, end: 20100525
  12. DALACIN-C [Suspect]
     Active Substance: CLINDAMYCIN
     Dates: start: 20100429, end: 20100502

REACTIONS (6)
  - Gamma-glutamyltransferase increased [Recovered/Resolved]
  - Blood alkaline phosphatase increased [Recovered/Resolved]
  - Rash [Recovered/Resolved]
  - Bacterial infection [Recovered/Resolved]
  - Pruritus [Recovered/Resolved]
  - Abscess [Recovered/Resolved]

NARRATIVE: CASE EVENT DATE: 20100428
